FAERS Safety Report 25118405 (Version 1)
Quarter: 2025Q1

REPORT INFORMATION
  Report Type: Spontaneous
  Country: CO (occurrence: CO)
  Receive Date: 20250325
  Receipt Date: 20250325
  Transmission Date: 20250408
  Serious: Yes (Hospitalization, Other)
  Sender: NOVITIUM PHARMA
  Company Number: CO-NOVITIUMPHARMA-2025CONVP00760

PATIENT
  Age: 57 Year
  Sex: Male

DRUGS (5)
  1. DEXAMETHASONE [Suspect]
     Active Substance: DEXAMETHASONE
     Indication: Cervical radiculopathy
     Route: 042
  2. PIPERACILLIN SODIUM\TAZOBACTAM SODIUM [Concomitant]
     Active Substance: PIPERACILLIN SODIUM\TAZOBACTAM SODIUM
     Indication: Infectious pleural effusion
  3. PEMETREXED [Concomitant]
     Active Substance: PEMETREXED
  4. CISPLATIN [Concomitant]
     Active Substance: CISPLATIN
  5. PEMBROLIZUMAB [Concomitant]
     Active Substance: PEMBROLIZUMAB

REACTIONS (4)
  - Empyema [Recovering/Resolving]
  - Leclercia bacteraemia [Recovering/Resolving]
  - Pulmonary sepsis [Recovering/Resolving]
  - Systemic inflammatory response syndrome [Recovering/Resolving]
